FAERS Safety Report 8068817-2 (Version None)
Quarter: 2012Q1

REPORT INFORMATION
  Report Type: 
  Country: None (occurrence: None)
  Receive Date: 20120125
  Receipt Date: 20120116
  Transmission Date: 20120608
  Serious: Yes (Hospitalization)
  Sender: FDA-Public Use
  Company Number: FR-BRISTOL-MYERS SQUIBB COMPANY-16357162

PATIENT
  Age: 41 Year
  Sex: Male

DRUGS (4)
  1. NORVIR [Suspect]
     Indication: HIV INFECTION
     Route: 048
     Dates: start: 20070605, end: 20110530
  2. ABACAVIR SULFATE AND LAMIVUDINE [Suspect]
     Indication: HIV INFECTION
     Dosage: 1 DF = KIVEXA 600MG/300MG TABLET
     Route: 048
     Dates: start: 20100601, end: 20110530
  3. REYATAZ [Suspect]
     Indication: HIV INFECTION
     Route: 048
     Dates: start: 20100601, end: 20110530
  4. TELZIR [Concomitant]
     Indication: HIV INFECTION
     Dates: start: 20070606, end: 20101006

REACTIONS (2)
  - ARTHRALGIA [None]
  - OSTEONECROSIS [None]
